FAERS Safety Report 5872455-7 (Version None)
Quarter: 2008Q3

REPORT INFORMATION
  Report Type: 
  Country: None (occurrence: None)
  Receive Date: 20080905
  Receipt Date: 20080902
  Transmission Date: 20090109
  Serious: Yes (Life-Threatening, Hospitalization)
  Sender: FDA-Public Use
  Company Number: PHHY2008FR20059

PATIENT
  Sex: Male

DRUGS (10)
  1. ESIDRIX [Suspect]
     Dosage: 50 MG/DAY
     Dates: start: 20080301, end: 20080628
  2. ESOMEPRAZOLE [Concomitant]
     Dosage: 20 MG/DAY
     Dates: start: 20080101
  3. RAMIPRIL [Concomitant]
     Dosage: 5 MG, BID
  4. LASIX [Concomitant]
     Dosage: 250 MG, BID
  5. FOSAMAX [Concomitant]
     Dosage: 70 MG, QW
  6. PREVISCAN [Concomitant]
     Dosage: 5 MG, QD
  7. CARDENSIEL [Concomitant]
     Dosage: 2.5 MG, BID
  8. INSPRA [Concomitant]
     Dosage: 50 MG/DAY
  9. IDEOS [Concomitant]
  10. DIFFU K [Concomitant]

REACTIONS (13)
  - ANAEMIA [None]
  - BLOOD CREATININE INCREASED [None]
  - BLOOD PRESSURE DECREASED [None]
  - BLOOD UREA INCREASED [None]
  - GENERAL PHYSICAL HEALTH DETERIORATION [None]
  - HAEMATOCRIT DECREASED [None]
  - HAEMOGLOBIN DECREASED [None]
  - HEART TRANSPLANT [None]
  - MALAISE [None]
  - RENAL FAILURE [None]
  - RETICULOCYTE COUNT INCREASED [None]
  - SPINAL MYELOGRAM ABNORMAL [None]
  - THROMBOCYTOPENIA [None]
